FAERS Safety Report 15538430 (Version 1)
Quarter: 2018Q4

REPORT INFORMATION
  Report Type: Spontaneous
  Country: SV (occurrence: SV)
  Receive Date: 20181022
  Receipt Date: 20181022
  Transmission Date: 20190205
  Serious: Yes (Other)
  Sender: FDA-Public Use
  Company Number: SV-ELI_LILLY_AND_COMPANY-SV201810008744

PATIENT
  Age: 78 Year
  Sex: Female

DRUGS (1)
  1. FORTEO [Suspect]
     Active Substance: TERIPARATIDE
     Indication: OSTEOPOROTIC FRACTURE
     Dosage: UNK UNK, UNKNOWN
     Route: 065
     Dates: start: 201709, end: 201809

REACTIONS (7)
  - Metastatic neoplasm [Unknown]
  - Fatigue [Unknown]
  - Adenocarcinoma [Unknown]
  - Vomiting [Unknown]
  - Headache [Unknown]
  - Amoebiasis [Unknown]
  - Neoplasm malignant [Unknown]
